FAERS Safety Report 6980021-5 (Version None)
Quarter: 2010Q3

REPORT INFORMATION
  Report Type: 
  Country: None (occurrence: None)
  Receive Date: 20100914
  Receipt Date: 20100902
  Transmission Date: 20110219
  Serious: Yes (Other)
  Sender: FDA-Public Use
  Company Number: US-PFIZER INC-2010102034

PATIENT
  Sex: Female
  Weight: 71.2 kg

DRUGS (2)
  1. LYRICA [Suspect]
     Indication: FIBROMYALGIA
     Dosage: 50 MG, UNK
     Route: 048
     Dates: end: 20100701
  2. LYRICA [Suspect]
     Indication: PARTIAL SEIZURES

REACTIONS (9)
  - BLOOD PRESSURE ABNORMAL [None]
  - CONVULSION [None]
  - FATIGUE [None]
  - HALLUCINATION, VISUAL [None]
  - PAIN [None]
  - ROAD TRAFFIC ACCIDENT [None]
  - SLEEP DISORDER [None]
  - SURGERY [None]
  - VITAMIN D DECREASED [None]
